FAERS Safety Report 11176828 (Version 1)
Quarter: 2015Q2

REPORT INFORMATION
  Report Type: Spontaneous
  Country: GB (occurrence: GB)
  Receive Date: 20150610
  Receipt Date: 20150610
  Transmission Date: 20150821
  Serious: Yes (Hospitalization)
  Sender: FDA-Public Use
  Company Number: GB-SA-2015SA077426

PATIENT
  Age: 74 Year
  Sex: Male

DRUGS (11)
  1. SALBUTAMOL [Concomitant]
     Active Substance: ALBUTEROL
  2. SULFASALAZINE. [Concomitant]
     Active Substance: SULFASALAZINE
  3. CARBOCISTEINE [Concomitant]
     Active Substance: CARBOCYSTEINE
  4. SERETIDE [Concomitant]
     Active Substance: FLUTICASONE FUROATE\SALMETEROL XINAFOATE
  5. FORCEVAL [Concomitant]
     Active Substance: FOLIC ACID\IRON\MINERALS\VITAMINS
  6. ALENDRONIC ACID [Concomitant]
     Active Substance: ALENDRONIC ACID
  7. TIOTROPIUM [Concomitant]
     Active Substance: TIOTROPIUM
  8. HYDROXYCHLOROQUINE [Concomitant]
     Active Substance: HYDROXYCHLOROQUINE
  9. LEFLUNOMIDE. [Suspect]
     Active Substance: LEFLUNOMIDE
     Indication: RHEUMATOID ARTHRITIS
     Route: 048
     Dates: start: 20150219, end: 20150520
  10. OMEPRAZOLE. [Concomitant]
     Active Substance: OMEPRAZOLE
  11. PREDNISOLONE. [Concomitant]
     Active Substance: PREDNISOLONE

REACTIONS (11)
  - Abnormal loss of weight [Unknown]
  - Toxicity to various agents [Unknown]
  - Decreased appetite [Unknown]
  - Insomnia [Recovered/Resolved]
  - Jaundice [Recovered/Resolved]
  - Cholecystitis acute [Unknown]
  - Fatigue [Recovering/Resolving]
  - Abdominal pain [Unknown]
  - Nausea [Not Recovered/Not Resolved]
  - Liver function test abnormal [Recovering/Resolving]
  - Malaise [Recovering/Resolving]

NARRATIVE: CASE EVENT DATE: 20150418
